FAERS Safety Report 10397723 (Version 1)
Quarter: 2014Q3

REPORT INFORMATION
  Report Type: Spontaneous
  Country: ES (occurrence: ES)
  Receive Date: 20140821
  Receipt Date: 20140821
  Transmission Date: 20150326
  Serious: Yes (Other)
  Sender: FDA-Public Use
  Company Number: ES-AMGEN-ESPSP2014062452

PATIENT
  Age: 75 Year
  Sex: Female

DRUGS (10)
  1. INSULIN [Concomitant]
     Active Substance: INSULIN NOS
  2. PARICALCITOL. [Concomitant]
     Active Substance: PARICALCITOL
  3. ERYTHROPOIETIN [Concomitant]
     Active Substance: ERYTHROPOIETIN
  4. ACETYLSALICYLIC ACID [Concomitant]
     Active Substance: ASPIRIN
  5. PROLIA [Suspect]
     Active Substance: DENOSUMAB
     Indication: PRODUCT USED FOR UNKNOWN INDICATION
     Dosage: 60 MG, Q6MO
     Route: 058
  6. DOXAZOSIN [Concomitant]
     Active Substance: DOXAZOSIN\DOXAZOSIN MESYLATE
  7. IRON [Concomitant]
     Active Substance: IRON
     Route: 048
  8. TORSEMIDE. [Concomitant]
     Active Substance: TORSEMIDE
  9. NIFEDIPINE. [Concomitant]
     Active Substance: NIFEDIPINE
  10. CALCIFEDIOL [Concomitant]
     Active Substance: CALCIFEDIOL

REACTIONS (5)
  - Hyperparathyroidism [Not Recovered/Not Resolved]
  - Paraesthesia [Unknown]
  - Hypocalcaemia [Unknown]
  - Tremor [Unknown]
  - Muscle spasms [Unknown]
